FAERS Safety Report 10625092 (Version 1)
Quarter: 2014Q4

REPORT INFORMATION
  Report Type: Spontaneous
  Country: BR (occurrence: None)
  Receive Date: 20141202
  Receipt Date: 20141202
  Transmission Date: 20150529
  Serious: Yes (Other)
  Sender: FDA-Public Use
  Company Number: BR-TORRENT-00002561

PATIENT
  Age: 26 Year
  Sex: Female

DRUGS (5)
  1. LAMITOR [Suspect]
     Active Substance: LAMOTRIGINE
     Indication: BIPOLAR DISORDER
     Route: 048
     Dates: start: 201310
  2. MESIGYNA [Concomitant]
  3. RIVOTRIL [Concomitant]
     Active Substance: CLONAZEPAM
  4. EXODUS [Concomitant]
     Active Substance: ESCITALOPRAM OXALATE
  5. QUETROS [Concomitant]
     Active Substance: QUETIAPINE

REACTIONS (8)
  - Menstruation delayed [None]
  - Insomnia [None]
  - Chest pain [None]
  - Constipation [None]
  - Apathy [None]
  - Palpitations [None]
  - Suicide attempt [None]
  - Off label use [None]

NARRATIVE: CASE EVENT DATE: 201311
